FAERS Safety Report 8356227-X (Version None)
Quarter: 2012Q2

REPORT INFORMATION
  Report Type: 
  Country: None (occurrence: None)
  Receive Date: 20120514
  Receipt Date: 20120504
  Transmission Date: 20120825
  Serious: Yes (Disabling)
  Sender: FDA-Public Use
  Company Number: US-JNJFOC-20120406370

PATIENT
  Sex: Male
  Weight: 72.58 kg

DRUGS (5)
  1. STELARA [Suspect]
     Indication: PSORIASIS
     Route: 058
     Dates: start: 20111208
  2. ETANERCEPT [Concomitant]
     Indication: NAIL PSORIASIS
     Route: 065
  3. STELARA [Suspect]
     Route: 058
     Dates: start: 20120110
  4. NAPROXEN [Concomitant]
     Indication: BACK PAIN
     Route: 065
  5. ALL OTHER THERAPEUTIC DRUG [Concomitant]
     Indication: NAIL PSORIASIS
     Route: 061

REACTIONS (4)
  - CONFUSIONAL STATE [None]
  - CEREBRAL ATROPHY [None]
  - WEIGHT DECREASED [None]
  - HEADACHE [None]
